FAERS Safety Report 23405117 (Version 2)
Quarter: 2024Q1

REPORT INFORMATION
  Report Type: Report from Study
  Country: BR (occurrence: BR)
  Receive Date: 20240116
  Receipt Date: 20240307
  Transmission Date: 20240409
  Serious: Yes (Death, Life-Threatening, Hospitalization)
  Sender: FDA-Public Use
  Company Number: BR-ELI_LILLY_AND_COMPANY-BR202401003802

PATIENT
  Age: 69 Year
  Sex: Male

DRUGS (1)
  1. FORTEO [Suspect]
     Active Substance: TERIPARATIDE
     Indication: Osteoporosis
     Dosage: 20 UG, DAILY
     Route: 065
     Dates: start: 202306

REACTIONS (6)
  - Hepatic cancer [Fatal]
  - Kidney infection [Unknown]
  - Sepsis [Unknown]
  - Liver disorder [Unknown]
  - Renal impairment [Unknown]
  - Blood pressure decreased [Unknown]
